FAERS Safety Report 10098381 (Version 1)
Quarter: 2014Q2

REPORT INFORMATION
  Report Type: Spontaneous
  Country: JP (occurrence: JP)
  Receive Date: 20140423
  Receipt Date: 20140423
  Transmission Date: 20141212
  Serious: Yes (Other)
  Sender: FDA-Public Use
  Company Number: JP-JNJFOC-20140409154

PATIENT
  Sex: 0

DRUGS (4)
  1. RISPERDAL [Suspect]
     Indication: AGGRESSION
     Route: 048
     Dates: start: 20140313, end: 20140319
  2. RISPERDAL [Suspect]
     Indication: AGGRESSION
     Route: 048
     Dates: start: 20140320
  3. GRAMALIL [Suspect]
     Indication: AGGRESSION
     Route: 048
     Dates: start: 20140327, end: 20140405
  4. GRAMALIL [Suspect]
     Indication: AGGRESSION
     Route: 048
     Dates: start: 20140406

REACTIONS (7)
  - Bradycardia [Unknown]
  - Hypothermia [Unknown]
  - Miosis [Unknown]
  - Blood pressure decreased [Unknown]
  - Oxygen saturation decreased [Unknown]
  - Dysarthria [Unknown]
  - Off label use [Unknown]
